FAERS Safety Report 7432862-8 (Version None)
Quarter: 2011Q2

REPORT INFORMATION
  Report Type: 
  Country: None (occurrence: None)
  Receive Date: 20110422
  Receipt Date: 20110418
  Transmission Date: 20111010
  Serious: Yes (Death, Other)
  Sender: FDA-Public Use
  Company Number: BR-ABBOTT-11P-020-0720075-00

PATIENT
  Sex: Female
  Weight: 46 kg

DRUGS (5)
  1. LISADOR [Concomitant]
     Indication: PAIN
     Route: 048
  2. LISADOR [Concomitant]
     Indication: PYREXIA
  3. PANTOPRAZOLE [Concomitant]
     Indication: PRODUCT USED FOR UNKNOWN INDICATION
     Route: 048
  4. HUMIRA [Suspect]
     Indication: CROHN'S DISEASE
     Route: 058
  5. VEDICARDOL [Concomitant]
     Indication: PRODUCT USED FOR UNKNOWN INDICATION
     Route: 048

REACTIONS (5)
  - HYPOTENSION [None]
  - CARDIAC ARREST [None]
  - MALAISE [None]
  - GASTROINTESTINAL NECROSIS [None]
  - CROHN'S DISEASE [None]
